FAERS Safety Report 12695160 (Version 1)
Quarter: 2016Q3

REPORT INFORMATION
  Report Type: Spontaneous
  Country: MY (occurrence: MY)
  Receive Date: 20160829
  Receipt Date: 20160829
  Transmission Date: 20161109
  Serious: Yes (Other)
  Sender: FDA-Public Use
  Company Number: ALCN2016MY005809

PATIENT
  Age: 62 Year
  Sex: Male

DRUGS (2)
  1. MYDFRIN [Suspect]
     Active Substance: PHENYLEPHRINE HYDROCHLORIDE
     Indication: PREOPERATIVE CARE
     Dosage: UNK
     Route: 047
     Dates: start: 20150304
  2. MYDRIACYL [Suspect]
     Active Substance: TROPICAMIDE
     Indication: PREOPERATIVE CARE
     Dosage: UNK
     Route: 047
     Dates: start: 20150304

REACTIONS (1)
  - Corneal opacity [Unknown]

NARRATIVE: CASE EVENT DATE: 20150304
